FAERS Safety Report 9694087 (Version 1)
Quarter: 2013Q4

REPORT INFORMATION
  Report Type: Spontaneous
  Country: JP (occurrence: JP)
  Receive Date: 20131118
  Receipt Date: 20131118
  Transmission Date: 20140711
  Serious: Yes (Other)
  Sender: FDA-Public Use
  Company Number: JP-ROCHE-1301510

PATIENT
  Age: 12 Year
  Sex: Male

DRUGS (1)
  1. ACTEMRA [Suspect]
     Indication: JUVENILE IDIOPATHIC ARTHRITIS
     Route: 041

REACTIONS (2)
  - Juvenile idiopathic arthritis [Not Recovered/Not Resolved]
  - Matrix metalloproteinase-3 increased [Not Recovered/Not Resolved]
